FAERS Safety Report 20172025 (Version 2)
Quarter: 2022Q1

REPORT INFORMATION
  Report Type: Spontaneous
  Country: BR (occurrence: BR)
  Receive Date: 20211210
  Receipt Date: 20220121
  Transmission Date: 20220423
  Serious: Yes (Other)
  Sender: FDA-Public Use
  Company Number: BR-AMERICAN REGENT INC-2021003189

PATIENT
  Sex: Male
  Weight: 47 kg

DRUGS (19)
  1. VENOFER [Suspect]
     Active Substance: IRON SUCROSE
     Indication: Mineral supplementation
     Dosage: 100 MG/5 ML, BEING 1 INTRAVENOUS AMPOULE 3 IN 1 WEEK
     Route: 042
     Dates: start: 202111
  2. VENOFER [Suspect]
     Active Substance: IRON SUCROSE
     Indication: Haemoglobin decreased
  3. LOSARTAN [Concomitant]
     Active Substance: LOSARTAN
     Indication: Product used for unknown indication
     Dosage: 50 MILLIGRAM, 1 IN 12 HR
     Route: 065
  4. AMLODIPINE [Concomitant]
     Active Substance: AMLODIPINE BESYLATE
     Indication: Product used for unknown indication
     Dosage: 5 MILLIGRAM, 1 IN 12 HR
     Route: 065
  5. FOLIC ACID [Concomitant]
     Active Substance: FOLIC ACID
     Indication: Product used for unknown indication
     Dosage: UNK, 1 IN 1 D
     Route: 065
  6. VITAMIN B COMPLEX [Concomitant]
     Active Substance: CYANOCOBALAMIN\DEXPANTHENOL\NIACINAMIDE\PYRIDOXINE HYDROCHLORIDE\RIBOFLAVIN 5^-PHOSPHATE SODIUM\THIA
     Indication: Product used for unknown indication
     Dosage: UNK, 1 IN 1 D
     Route: 065
  7. D3 VITAMIN [Concomitant]
     Indication: Product used for unknown indication
     Dosage: 50000 IU INTERNATIONAL UNIT(S), 1 IN 1 M
     Route: 065
  8. DEXCHLORPHENIRAMINE [Concomitant]
     Active Substance: DEXCHLORPHENIRAMINE
     Indication: Product used for unknown indication
     Dosage: 2 MG/5 ML (5 ML, 1 IN 8 HR)
     Route: 065
  9. SEVELAMER [Concomitant]
     Active Substance: SEVELAMER
     Indication: Product used for unknown indication
     Dosage: 3 CAPSULES AT BREAKFAST, 3 AT LUNCH, 3 AT EVENING SNACK AND 3 AT DINNER (800 MG)
     Route: 065
  10. CALCIUM CARBONATE [Concomitant]
     Active Substance: CALCIUM CARBONATE
     Indication: Product used for unknown indication
     Dosage: 1 CAPSULE IN THE MORNING, 1 IN THE AFTERNOON AND 1 AT NIGHT (500 MILLIGRAM)
     Route: 065
  11. PANTOPRAZOLE SODIUM [Concomitant]
     Active Substance: PANTOPRAZOLE SODIUM
     Indication: Product used for unknown indication
     Dosage: 1 CAPSULE IN THE MORNING WHILE FASTING (40 MILLIGRAM)
     Route: 065
  12. CLONAZEPAM [Concomitant]
     Active Substance: CLONAZEPAM
     Indication: Product used for unknown indication
     Dosage: 1 CAPSULE BEFORE SLEEPING (2 MILLIGRAM)
     Route: 065
  13. INSULIN BEEF [Concomitant]
     Active Substance: INSULIN BEEF
     Indication: Diabetes mellitus
     Dosage: 10 UNITS IN THE MORNING, 6 IN THE AFTERNOON, 6 AT NIGHT
     Route: 065
  14. INSULIN REGULAR [INSULIN PORCINE] [Concomitant]
     Indication: Diabetes mellitus
     Dosage: 4 IN THE MORNING, 4 IN THE AFTERNOON, 4 AT NIGHT
     Route: 065
  15. HEMAX [EPOETIN ALFA] [Concomitant]
     Indication: Product used for unknown indication
     Dosage: 10000 IU INTERNATIONAL UNIT(S) 3 TIMES A WEEK AT THE CLINIC
     Route: 065
  16. ATROPINA [ATROPINE SULFATE] [Concomitant]
     Indication: Product used for unknown indication
     Dosage: 1 DROP EVERY 12 HOURS IN THE LEFT EYE
     Route: 047
  17. MADEXIN [Concomitant]
     Indication: Product used for unknown indication
     Dosage: 1 DROP EVERY 12 HOURS IN THE LEFT EYE
     Route: 047
  18. ASPIRIN [Concomitant]
     Active Substance: ASPIRIN
     Indication: Product used for unknown indication
     Dosage: 1 TABLET BEFORE LUNCH
     Route: 065
  19. DIPYRONE [Concomitant]
     Active Substance: DIPYRONE
     Indication: Glaucoma
     Dosage: 1000 MILLILITER
     Route: 065

REACTIONS (6)
  - Unevaluable event [Unknown]
  - Infection [Unknown]
  - Haemodialysis complication [Unknown]
  - Blood phosphorus increased [Unknown]
  - Serum ferritin decreased [Unknown]
  - Inability to afford medication [Unknown]

NARRATIVE: CASE EVENT DATE: 20210101
